FAERS Safety Report 16623593 (Version 1)
Quarter: 2019Q3

REPORT INFORMATION
  Report Type: Spontaneous
  Country: US (occurrence: US)
  Receive Date: 20190724
  Receipt Date: 20190724
  Transmission Date: 20191004
  Serious: No
  Sender: FDA-Public Use
  Company Number: US-ACCORD-070499

PATIENT
  Age: 58 Year
  Sex: Female

DRUGS (1)
  1. AMITRIPTYLINE ACCORD [Suspect]
     Active Substance: AMITRIPTYLINE
     Indication: INSOMNIA
     Dosage: 25 MG ONCE A DAY
     Route: 048
     Dates: start: 201806

REACTIONS (2)
  - Gastrointestinal disorder [Unknown]
  - Off label use [Unknown]
